FAERS Safety Report 4997143-0 (Version None)
Quarter: 2006Q1

REPORT INFORMATION
  Report Type: 
  Country: None (occurrence: None)
  Receive Date: 20060315
  Receipt Date: 20051221
  Transmission Date: 20060701
  Serious: Yes (Other)
  Sender: FDA-Public Use
  Company Number: 429674

PATIENT
  Sex: Female

DRUGS (6)
  1. BONIVA [Suspect]
     Indication: DRUG USE FOR UNKNOWN INDICATION
     Dates: start: 20050815
  2. ACIPHEX [Concomitant]
  3. RANITIDINE [Concomitant]
  4. DITROPAN XL [Concomitant]
  5. VALTREX [Concomitant]
  6. ESTROTEST (BENZYL ALCOHOL/ESTRADIOL UNDECYLATE/TESTOSTERONE PHENYLPROP [Concomitant]

REACTIONS (1)
  - OEDEMA PERIPHERAL [None]
